FAERS Safety Report 5606891-0 (Version None)
Quarter: 2008Q1

REPORT INFORMATION
  Report Type: 
  Country: None (occurrence: None)
  Receive Date: 20080111
  Receipt Date: 20071102
  Transmission Date: 20080703
  Serious: Yes (Other)
  Sender: FDA-Public Use
  Company Number: HQWYE340915FEB05

PATIENT
  Age: 66 Year
  Sex: Female

DRUGS (3)
  1. PREMPRO [Suspect]
     Dosage: ORAL
     Route: 048
     Dates: start: 19970607, end: 20000523
  2. PREMARIN [Suspect]
     Dosage: ORAL
     Route: 048
     Dates: start: 20011005, end: 20011005
  3. PROVERA [Suspect]
     Dosage: ORAL
     Route: 048
     Dates: start: 19960127, end: 19970317

REACTIONS (1)
  - BREAST CANCER [None]
